FAERS Safety Report 11131371 (Version 1)
Quarter: 2015Q2

REPORT INFORMATION
  Report Type: Spontaneous
  Country: US (occurrence: None)
  Receive Date: 20150521
  Receipt Date: 20150521
  Transmission Date: 20150821
  Serious: Yes (Hospitalization)
  Sender: FDA-Public Use
  Company Number: None

PATIENT
  Age: 42 Year
  Sex: Male

DRUGS (1)
  1. HUMIRA [Suspect]
     Active Substance: ADALIMUMAB
     Indication: CROHN^S DISEASE
     Dosage: 40MG/160MG
     Route: 058
     Dates: start: 20150424, end: 20150508

REACTIONS (5)
  - Arthralgia [None]
  - Dyspnoea [None]
  - Haematochezia [None]
  - Rash [None]
  - Muscular weakness [None]

NARRATIVE: CASE EVENT DATE: 20150424
